FAERS Safety Report 17238401 (Version 1)
Quarter: 2020Q1

REPORT INFORMATION
  Report Type: Spontaneous
  Country: US (occurrence: US)
  Receive Date: 20200104
  Receipt Date: 20200104
  Transmission Date: 20200409
  Serious: Yes (Other)
  Sender: FDA-Public Use
  Company Number: None

PATIENT
  Age: 47 Year
  Sex: Female
  Weight: 85.5 kg

DRUGS (2)
  1. OMEPRAZOLE 20 MG CAPSULES [Suspect]
     Active Substance: OMEPRAZOLE
     Indication: GASTROOESOPHAGEAL REFLUX DISEASE
     Dosage: ?          QUANTITY:60 CAPSULE(S);?
     Route: 048
     Dates: start: 20191116, end: 20200104
  2. GLIMEPIRIDE 4MG TABLETS [Suspect]
     Active Substance: GLIMEPIRIDE
     Indication: DIABETES MELLITUS
     Dosage: ?          QUANTITY:90 TABLET(S);?
     Route: 048
     Dates: start: 20191111, end: 20200104

REACTIONS (3)
  - Diabetes mellitus inadequate control [None]
  - Manufacturing issue [None]
  - Frustration tolerance decreased [None]

NARRATIVE: CASE EVENT DATE: 20200103
